FAERS Safety Report 7282758-X (Version None)
Quarter: 2011Q1

REPORT INFORMATION
  Report Type: 
  Country: None (occurrence: None)
  Receive Date: 20110128
  Receipt Date: 20110120
  Transmission Date: 20110831
  Serious: Yes (Death)
  Sender: FDA-Public Use
  Company Number: 1000018339

PATIENT
  Age: 36 Year
  Sex: Female

DRUGS (5)
  1. ANTICHOLINERGIC/PHENOBARBITAL (ANTICHOLINERGIC, PHENOBARBITAL) [Suspect]
  2. LEVOTHROID [Suspect]
  3. MORPHINE [Suspect]
  4. ALPRAZOLAM [Suspect]
  5. CLONAZEPAM [Suspect]

REACTIONS (3)
  - COMPLETED SUICIDE [None]
  - MULTIPLE DRUG OVERDOSE INTENTIONAL [None]
  - CARDIO-RESPIRATORY ARREST [None]
